FAERS Safety Report 9950387 (Version 1)
Quarter: 2014Q1

REPORT INFORMATION
  Report Type: Report from Study
  Country: US (occurrence: US)
  Receive Date: 20140304
  Receipt Date: 20140304
  Transmission Date: 20141002
  Serious: No
  Sender: FDA-Public Use
  Company Number: US-ABBVIE-13P-163-1071430-00

PATIENT
  Sex: Female

DRUGS (3)
  1. HUMIRA [Suspect]
     Indication: RHEUMATOID ARTHRITIS
     Dates: start: 201012
  2. UNKNOWN MEDICATION [Concomitant]
     Indication: HYPERTENSION
  3. UNKNOWN MEDICATION [Concomitant]
     Indication: BLOOD CHOLESTEROL INCREASED

REACTIONS (3)
  - Ear discomfort [Recovering/Resolving]
  - Sputum discoloured [Recovering/Resolving]
  - Nasopharyngitis [Recovering/Resolving]
